FAERS Safety Report 19762991 (Version 1)
Quarter: 2021Q3

REPORT INFORMATION
  Report Type: Spontaneous
  Country: DE (occurrence: DE)
  Receive Date: 20210830
  Receipt Date: 20210830
  Transmission Date: 20211014
  Serious: Yes (Life-Threatening, Hospitalization, Other)
  Sender: FDA-Public Use
  Company Number: DE-BAYER-2021-201040

PATIENT
  Age: 72 Year
  Sex: Female

DRUGS (3)
  1. GADOVIST [Suspect]
     Active Substance: GADOBUTROL
     Indication: ANGIOGRAM
  2. GADOVIST [Suspect]
     Active Substance: GADOBUTROL
     Indication: MAGNETIC RESONANCE IMAGING HEAD
     Dosage: 1 DF, ONCE
     Route: 042
     Dates: start: 20210816, end: 20210816
  3. GADOVIST [Suspect]
     Active Substance: GADOBUTROL
     Indication: INTRACRANIAL ANEURYSM

REACTIONS (7)
  - Hyporesponsive to stimuli [None]
  - Dyspnoea [None]
  - Thrombocytopenia [None]
  - Anaphylactic reaction [None]
  - Pulse abnormal [None]
  - Cold sweat [None]
  - Loss of consciousness [None]

NARRATIVE: CASE EVENT DATE: 20210816
